FAERS Safety Report 10243282 (Version 2)
Quarter: 2014Q2

REPORT INFORMATION
  Report Type: Report from Study
  Country: BR (occurrence: BR)
  Receive Date: 20140618
  Receipt Date: 20140618
  Transmission Date: 20141212
  Serious: Yes (Other)
  Sender: FDA-Public Use
  Company Number: PHHY2014BR059076

PATIENT
  Sex: Male
  Weight: 105 kg

DRUGS (7)
  1. SANDOSTATIN LAR [Suspect]
     Indication: ACROMEGALY
     Dosage: UNK UKN, QMO
     Route: 030
  2. SANDOSTATIN LAR [Suspect]
     Dosage: UNK UKN, QMO
     Route: 030
  3. SANDOSTATIN LAR [Suspect]
     Dosage: 10 MG, QMO
     Route: 030
  4. SOMAVERT [Suspect]
     Indication: ACROMEGALY
     Dosage: 1 DF, DAILY
     Route: 058
  5. CORTICOSTEROID NOS [Suspect]
     Indication: ACROMEGALY
     Dosage: 1 DF, UNK
     Route: 048
  6. PURAN T4 [Concomitant]
     Indication: THYROID DISORDER
     Dosage: 1 DF, DAILY
     Route: 048
  7. DEPURA [Concomitant]
     Dosage: 1 DF, UNK
     Route: 048

REACTIONS (6)
  - Cholelithiasis [Not Recovered/Not Resolved]
  - Abdominal hernia [Unknown]
  - Irritability [Not Recovered/Not Resolved]
  - Self esteem decreased [Not Recovered/Not Resolved]
  - Tremor [Not Recovered/Not Resolved]
  - Weight decreased [Not Recovered/Not Resolved]
